FAERS Safety Report 9057397 (Version 1)
Quarter: 2013Q1

REPORT INFORMATION
  Report Type: Spontaneous
  Country: JP (occurrence: JP)
  Receive Date: 20130204
  Receipt Date: 20130204
  Transmission Date: 20140127
  Serious: Yes (Other)
  Sender: FDA-Public Use
  Company Number: JP-OTSUKA-JP-2013-10194

PATIENT
  Age: 81 Year
  Sex: Female

DRUGS (7)
  1. PLETAAL [Suspect]
     Dosage: 100 MG MILLIGRAM(S), QD
     Route: 048
     Dates: start: 201104
  2. EBRANTIL [Concomitant]
     Dosage: 15 MG MILLIGRAM(S), QD
     Route: 048
     Dates: start: 201104
  3. REBAMIPIDE [Concomitant]
     Route: 048
  4. FERROMIA [Concomitant]
     Route: 048
  5. AMLODIN [Concomitant]
     Route: 048
  6. HUMALOG [Concomitant]
     Dosage: UNK
  7. LANTUS [Concomitant]
     Dosage: UNK

REACTIONS (1)
  - Blood glucose decreased [Recovering/Resolving]
